FAERS Safety Report 5758873-6 (Version None)
Quarter: 2008Q2

REPORT INFORMATION
  Report Type: 
  Country: None (occurrence: None)
  Receive Date: 20080604
  Receipt Date: 20080523
  Transmission Date: 20081010
  Serious: Yes (Other)
  Sender: FDA-Public Use
  Company Number: US-GILEAD-2008-0016610

PATIENT
  Age: 23 Year
  Sex: Female

DRUGS (6)
  1. VIREAD [Suspect]
     Route: 048
     Dates: start: 20080312
  2. LAMIVUDINE [Concomitant]
     Route: 048
     Dates: start: 20080213
  3. LAMIVUDINE [Concomitant]
     Route: 048
     Dates: end: 20080213
  4. KALETRA [Concomitant]
     Route: 048
     Dates: start: 20080227
  5. ATAZANAVIR SULFATE [Concomitant]
     Route: 048
     Dates: start: 20080227
  6. ZIDOVUDINE [Concomitant]
     Route: 048
     Dates: start: 20080213

REACTIONS (2)
  - PREGNANCY [None]
  - ULTRASOUND ANTENATAL SCREEN ABNORMAL [None]
